FAERS Safety Report 4755662-6 (Version None)
Quarter: 2005Q3

REPORT INFORMATION
  Report Type: 
  Country: None (occurrence: None)
  Receive Date: 20050830
  Receipt Date: 20050620
  Transmission Date: 20060218
  Serious: Yes (Other)
  Sender: FDA-Public Use
  Company Number: US-BRISTOL-MYERS SQUIBB COMPANY-13008941

PATIENT
  Age: 5 Decade
  Sex: Male

DRUGS (1)
  1. ABILIFY [Suspect]
     Dosage: DOSE LOWERED TO 45 MG/DAY

REACTIONS (3)
  - CONVULSION [None]
  - HALLUCINATION, AUDITORY [None]
  - PRESCRIBED OVERDOSE [None]
